FAERS Safety Report 8488045-6 (Version None)
Quarter: 2012Q3

REPORT INFORMATION
  Report Type: 
  Country: None (occurrence: None)
  Receive Date: 20120705
  Receipt Date: 20120621
  Transmission Date: 20120928
  Serious: Yes (Death, Hospitalization, Other)
  Sender: FDA-Public Use
  Company Number: US-CELGENEUS-163-21880-12042483

PATIENT
  Sex: Female

DRUGS (27)
  1. POTASSIUM CHLORIDE [Concomitant]
     Dosage: 20 MILLIEQUIVALENTS
     Route: 048
  2. PREGABALIN [Concomitant]
     Indication: NEUROPATHY PERIPHERAL
     Dosage: 50 MILLIGRAM
     Route: 048
  3. CITALOPRAM HYDROBROMIDE [Concomitant]
     Dosage: 10 MILLIGRAM
     Route: 048
  4. BISOPROLOL FUMARATE [Concomitant]
     Dosage: .5 MILLIGRAM
     Route: 048
  5. VELCADE [Concomitant]
     Route: 065
     Dates: start: 20110627
  6. LISINOPRIL [Concomitant]
     Indication: HYPERTENSION
     Dosage: 2.5 MILLIGRAM
     Route: 048
  7. MULTI-VITAMINS [Concomitant]
     Dosage: 1 TABLET
     Route: 048
  8. DEXAMETHASONE SODIUM PHOSPHATE [Concomitant]
     Route: 065
     Dates: start: 20110627
  9. LYRICA [Concomitant]
     Route: 065
  10. REVLIMID [Suspect]
     Dosage: 20 MILLIGRAM
     Route: 048
     Dates: start: 20110211, end: 20110620
  11. PREDNISONE [Concomitant]
     Dosage: 5 MILLIGRAM
     Route: 048
  12. MAGNESIUM OXIDE [Concomitant]
     Dosage: 400 MILLIGRAM
     Route: 048
  13. PROCHLORPERAZINE [Concomitant]
     Dosage: 10 MILLIGRAM
     Route: 048
  14. FERRLECIT [Concomitant]
     Dosage: 8 INFUSIONS
     Route: 041
  15. POLYETHYLENE GLYCOL [Concomitant]
     Dosage: 17 GRAM
     Route: 048
  16. PROAIR HFA [Concomitant]
     Dosage: 2 PUFFS
     Route: 065
  17. SPIRONOLACTONE [Concomitant]
     Dosage: .5 MILLIGRAM
     Route: 048
  18. OMEPRAZOLE [Concomitant]
     Dosage: 20 MILLIGRAM
     Route: 048
  19. ZOLPIDEM [Concomitant]
     Indication: INSOMNIA
     Dosage: 5 MILLIGRAM
     Route: 048
  20. ASPIRIN [Concomitant]
     Dosage: 325 MILLIGRAM
     Route: 048
  21. LACTOBACILLUS RHAMNOSUS [Concomitant]
     Dosage: 1 CAPSULE
     Route: 048
  22. SODIUM CHLORIDE [Concomitant]
     Dosage: 2 SPRAYS
     Route: 045
  23. DEXAMETHASONE SODIUM PHOSPHATE [Concomitant]
     Indication: MULTIPLE MYELOMA
     Route: 065
     Dates: start: 20100201
  24. REVLIMID [Suspect]
     Dosage: 15 MILLIGRAM
     Route: 048
     Dates: start: 20100201, end: 20100901
  25. ENOXAPARIN [Concomitant]
     Dosage: 60 MILLIGRAM
     Route: 058
  26. SIMVASTATIN [Concomitant]
     Dosage: 40 MILLIGRAM
     Route: 048
  27. LOVENOX [Concomitant]
     Route: 065

REACTIONS (3)
  - BONE MARROW FAILURE [None]
  - MULTIPLE MYELOMA [None]
  - PNEUMONIA [None]
